FAERS Safety Report 10637388 (Version 1)
Quarter: 2014Q4

REPORT INFORMATION
  Report Type: Spontaneous
  Country: None (occurrence: None)
  Receive Date: 20141204
  Receipt Date: 20141204
  Transmission Date: 20150529
  Serious: Yes (Other)
  Sender: FDA-Public Use
  Company Number: 2014120009

PATIENT
  Age: 87 Year
  Sex: Female
  Weight: 76 kg

DRUGS (6)
  1. UNAT 10 MG (TORASEMIDE) [Suspect]
     Active Substance: TORSEMIDE
     Indication: DIURETIC THERAPY
     Route: 048
     Dates: start: 2009
  2. MEDROL [Concomitant]
     Active Substance: METHYLPREDNISOLONE
  3. CO-AMOXICLAV [Concomitant]
     Active Substance: AMOXICILLIN\CLAVULANIC ACID
  4. CARLOC (CARVEDILOL) [Concomitant]
  5. SANDOZ [Concomitant]
  6. TRAMAZAC (TRAMADOL) [Concomitant]

REACTIONS (1)
  - Dyspnoea [None]

NARRATIVE: CASE EVENT DATE: 201405
